FAERS Safety Report 9908857 (Version 2)
Quarter: 2014Q3

REPORT INFORMATION
  Report Type: Spontaneous
  Country: US (occurrence: None)
  Receive Date: 20140212
  Receipt Date: 20140703
  Transmission Date: 20150326
  Serious: Yes (Other)
  Sender: FDA-Public Use
  Company Number: 2014-US-001137

PATIENT
  Age: 26 Year
  Sex: Male
  Weight: 66.7 kg

DRUGS (2)
  1. XYREM [Suspect]
     Active Substance: SODIUM OXYBATE
     Indication: CATAPLEXY
     Dosage: 2.25 G, BID, ORAL
     Route: 048
     Dates: start: 201401
  2. XYREM [Suspect]
     Active Substance: SODIUM OXYBATE
     Indication: NARCOLEPSY
     Dosage: 2.25 G, BID, ORAL
     Route: 048
     Dates: start: 201401

REACTIONS (10)
  - Tremor [None]
  - Slow response to stimuli [None]
  - Weight decreased [None]
  - Eye movement disorder [None]
  - Hallucination [None]
  - Convulsion [None]
  - Decreased appetite [None]
  - Dizziness [None]
  - Hypoaesthesia [None]
  - Abnormal dreams [None]

NARRATIVE: CASE EVENT DATE: 20140125
